FAERS Safety Report 4744976-1 (Version None)
Quarter: 2005Q3

REPORT INFORMATION
  Report Type: 
  Country: None (occurrence: None)
  Receive Date: 20050815
  Receipt Date: 20050803
  Transmission Date: 20060218
  Serious: Yes (Other)
  Sender: FDA-Public Use
  Company Number: HR-BRISTOL-MYERS SQUIBB COMPANY-13062161

PATIENT
  Age: 42 Year
  Sex: Female

DRUGS (2)
  1. CEFEPIME FOR INJ [Suspect]
     Indication: UROSEPSIS
     Route: 042
  2. CEFEPIME FOR INJ [Suspect]
     Indication: PSEUDOMONAL SEPSIS
     Route: 042

REACTIONS (4)
  - DYSARTHRIA [None]
  - MYOCLONUS [None]
  - SOMNOLENCE [None]
  - STATUS EPILEPTICUS [None]
